FAERS Safety Report 9966003 (Version 1)
Quarter: 2014Q1

REPORT INFORMATION
  Report Type: Report from Study
  Country: US (occurrence: US)
  Receive Date: 20140305
  Receipt Date: 20140305
  Transmission Date: 20141002
  Serious: No
  Sender: FDA-Public Use
  Company Number: US-ABBVIE-13P-163-1127368-00

PATIENT
  Age: 70 Year
  Sex: Male
  Weight: 77.18 kg

DRUGS (8)
  1. HUMIRA [Suspect]
     Indication: PSORIASIS
     Dosage: INITIAL DOSE
     Dates: start: 20130725, end: 20130725
  2. HUMIRA [Suspect]
     Indication: PSORIATIC ARTHROPATHY
  3. TRAMADOL [Suspect]
     Indication: ARTHRALGIA
     Dosage: 4-6 TIMES DAILY
  4. LEVEMIR [Concomitant]
     Indication: DIABETES MELLITUS
  5. DOXAZOSIN [Concomitant]
     Indication: HYPERTENSION
  6. ATENOLOL [Concomitant]
     Indication: HYPERTENSION
  7. PRAVASTATIN [Concomitant]
     Indication: BLOOD CHOLESTEROL INCREASED
  8. NOVOLOG [Concomitant]
     Indication: DIABETES MELLITUS

REACTIONS (3)
  - Dizziness [Recovering/Resolving]
  - Pruritus generalised [Not Recovered/Not Resolved]
  - Nausea [Recovering/Resolving]
